FAERS Safety Report 17128845 (Version 1)
Quarter: 2019Q4

REPORT INFORMATION
  Report Type: Spontaneous
  Country: US (occurrence: US)
  Receive Date: 20191115
  Receipt Date: 20191115
  Transmission Date: 20200122
  Serious: Yes (Hospitalization)
  Sender: FDA-Public Use
  Company Number: None

PATIENT
  Age: 32 Year
  Sex: Male
  Weight: 107 kg

DRUGS (7)
  1. DOXORUBICIN HYDROCHLORIDE. [Suspect]
     Active Substance: DOXORUBICIN HYDROCHLORIDE
     Dates: end: 20191007
  2. CYCLOPHOSPHAMIDE. [Suspect]
     Active Substance: CYCLOPHOSPHAMIDE
     Dates: end: 20191021
  3. VINCRISTINE SULFATE. [Suspect]
     Active Substance: VINCRISTINE SULFATE
     Dates: end: 20191104
  4. DEXAMETHASONE. [Suspect]
     Active Substance: DEXAMETHASONE
     Dates: end: 20191013
  5. CYTARABINE. [Suspect]
     Active Substance: CYTARABINE
     Dates: end: 20191030
  6. RITUXIMAB (MOAB C2B8 ANTI CD20, CHIMERIC) [Suspect]
     Active Substance: RITUXIMAB
     Dates: start: 20190930
  7. THIOGUANINE (6-TG)(752) [Suspect]
     Active Substance: THIOGUANINE ANHYDROUS
     Dates: end: 20191103

REACTIONS (7)
  - White blood cell count decreased [None]
  - Dysphagia [None]
  - Rhinovirus infection [None]
  - Neutrophil count decreased [None]
  - Oral pain [None]
  - Headache [None]
  - Cough [None]

NARRATIVE: CASE EVENT DATE: 20191107
